FAERS Safety Report 19244179 (Version 2)
Quarter: 2021Q2

REPORT INFORMATION
  Report Type: Report from Study
  Country: None (occurrence: US)
  Receive Date: 20210512
  Receipt Date: 20210526
  Transmission Date: 20210717
  Serious: Yes (Hospitalization, Other)
  Sender: FDA-Public Use
  Company Number: DE-ABBVIE-21K-062-3899243-00

PATIENT
  Age: 47 Year
  Sex: Female

DRUGS (3)
  1. ENTOCORT [Concomitant]
     Active Substance: BUDESONIDE
     Indication: PRODUCT USED FOR UNKNOWN INDICATION
     Dosage: UNKNOWN
     Route: 065
  2. HUMIRA [Suspect]
     Active Substance: ADALIMUMAB
     Indication: PRODUCT USED FOR UNKNOWN INDICATION
     Route: 058
  3. IMRALDI [Suspect]
     Active Substance: ADALIMUMAB
     Indication: CROHN^S DISEASE
     Route: 058
     Dates: start: 20200524, end: 20200524

REACTIONS (8)
  - Post procedural infection [Recovering/Resolving]
  - Vena cava thrombosis [Unknown]
  - Ovarian adenoma [Recovered/Resolved]
  - Factor V Leiden mutation [Unknown]
  - Adrenal insufficiency [Not Recovered/Not Resolved]
  - Anastomotic stenosis [Recovered/Resolved]
  - Post procedural complication [Unknown]
  - Feeding disorder [Unknown]

NARRATIVE: CASE EVENT DATE: 20210318
